FAERS Safety Report 16015892 (Version 1)
Quarter: 2019Q1

REPORT INFORMATION
  Report Type: Report from Study
  Country: US (occurrence: US)
  Receive Date: 20190228
  Receipt Date: 20190228
  Transmission Date: 20190418
  Serious: No
  Sender: FDA-Public Use
  Company Number: US-ROCHE-2272236

PATIENT
  Sex: Female
  Weight: 48.58 kg

DRUGS (12)
  1. YAZ [Concomitant]
     Active Substance: DROSPIRENONE\ETHINYL ESTRADIOL
     Indication: CONTRACEPTION
     Dosage: ONGOING:YES
     Route: 065
  2. ESCITALOPRAM [Concomitant]
     Active Substance: ESCITALOPRAM OXALATE
     Indication: POST-TRAUMATIC STRESS DISORDER
     Dosage: ONGOING:YES
     Route: 065
     Dates: start: 2016
  3. BACLOFEN. [Concomitant]
     Active Substance: BACLOFEN
     Indication: TREMOR
     Dosage: ONGOING:YES
     Route: 065
  4. VALCIVIR [Concomitant]
     Active Substance: VALACYCLOVIR HYDROCHLORIDE
     Indication: ORAL HERPES
     Dosage: ONGOING:YES
     Route: 065
     Dates: start: 2017
  5. VERAPAMIL [Concomitant]
     Active Substance: VERAPAMIL HYDROCHLORIDE
     Indication: TREMOR
     Dosage: ONGOING:YES
     Route: 065
  6. GINGER ROOT [Concomitant]
     Active Substance: GINGER
     Dosage: ONGOING:YES
     Route: 065
  7. HORIZANT [Concomitant]
     Active Substance: GABAPENTIN ENACARBIL
     Indication: POST-TRAUMATIC STRESS DISORDER
     Dosage: ONGOING:YES
     Route: 065
     Dates: start: 2016
  8. VITAMIN D3 [Concomitant]
     Active Substance: CHOLECALCIFEROL
     Dosage: ONGOING:YES
     Route: 065
  9. KLONOPIN [Suspect]
     Active Substance: CLONAZEPAM
     Indication: POST-TRAUMATIC STRESS DISORDER
     Route: 065
     Dates: start: 2016
  10. VITAMIN B12 [Concomitant]
     Active Substance: CYANOCOBALAMIN
     Dosage: ONGOING:YES
     Route: 065
  11. OCREVUS [Suspect]
     Active Substance: OCRELIZUMAB
     Indication: RELAPSING-REMITTING MULTIPLE SCLEROSIS
     Dosage: FIRST FULL DOSE ON 2018.
     Route: 042
     Dates: start: 2017
  12. BENADRYL [Concomitant]
     Active Substance: DIPHENHYDRAMINE HYDROCHLORIDE
     Indication: PREMEDICATION

REACTIONS (2)
  - Weight decreased [Not Recovered/Not Resolved]
  - Oral herpes [Not Recovered/Not Resolved]

NARRATIVE: CASE EVENT DATE: 2018
